FAERS Safety Report 16634673 (Version 1)
Quarter: 2019Q3

REPORT INFORMATION
  Report Type: Spontaneous
  Country: CN (occurrence: CN)
  Receive Date: 20190726
  Receipt Date: 20190726
  Transmission Date: 20191004
  Serious: Yes (Other)
  Sender: FDA-Public Use
  Company Number: CN-ROCHE-2360278

PATIENT
  Age: 47 Year
  Sex: Female
  Weight: 77.8 kg

DRUGS (2)
  1. HERCEPTIN [Suspect]
     Active Substance: TRASTUZUMAB
     Indication: BREAST CANCER
     Route: 041
     Dates: start: 20190704, end: 20190704
  2. SODIUM CHLORIDE. [Concomitant]
     Active Substance: SODIUM CHLORIDE
     Indication: BREAST CANCER
     Route: 041
     Dates: start: 20190704, end: 20190704

REACTIONS (7)
  - Chills [Recovering/Resolving]
  - Nausea [Recovering/Resolving]
  - Vomiting [Recovering/Resolving]
  - Muscle tightness [Recovering/Resolving]
  - Headache [Recovering/Resolving]
  - Myalgia [Recovering/Resolving]
  - Musculoskeletal stiffness [Recovering/Resolving]

NARRATIVE: CASE EVENT DATE: 20190704
